FAERS Safety Report 16907219 (Version 1)
Quarter: 2019Q4

REPORT INFORMATION
  Report Type: Spontaneous
  Country: JP (occurrence: JP)
  Receive Date: 20191011
  Receipt Date: 20191011
  Transmission Date: 20200122
  Serious: Yes (Hospitalization)
  Sender: FDA-Public Use
  Company Number: JP-TAKEDA-2019TJP014627

PATIENT
  Age: 97 Year
  Sex: Female
  Weight: 41.1 kg

DRUGS (16)
  1. ROZEREM [Interacting]
     Active Substance: RAMELTEON
     Dosage: 4 MILLIGRAM, QD
     Route: 048
     Dates: start: 20181107, end: 20181130
  2. DONEPEZIL HYDROCHLORIDE. [Suspect]
     Active Substance: DONEPEZIL HYDROCHLORIDE
     Indication: DEMENTIA ALZHEIMER^S TYPE
     Dosage: 5 MILLIGRAM, QD
     Route: 048
     Dates: end: 20181107
  3. IMIDAPRIL HYDROCHLORIDE [Interacting]
     Active Substance: IMIDAPRIL HYDROCHLORIDE
     Indication: HYPERTENSION
     Dosage: 5 MILLIGRAM, QD
     Route: 048
     Dates: end: 20181107
  4. ETIZOLAM [Interacting]
     Active Substance: ETIZOLAM
     Indication: INSOMNIA
     Dosage: 0.5 MILLIGRAM, QD
     Route: 048
     Dates: end: 20181106
  5. AMLODIPINE                         /00972402/ [Interacting]
     Active Substance: AMLODIPINE BESYLATE
     Indication: HYPERTENSION
     Dosage: 5 MILLIGRAM, QD
     Route: 048
  6. FAMOTIDINE. [Concomitant]
     Active Substance: FAMOTIDINE
     Indication: PRODUCT USED FOR UNKNOWN INDICATION
     Dosage: 20 MILLIGRAM, BID
     Route: 048
  7. FAMOTIDINE. [Concomitant]
     Active Substance: FAMOTIDINE
     Dosage: 10 MILLIGRAM, QD
     Route: 048
     Dates: end: 20181107
  8. EBRANTIL [Interacting]
     Active Substance: URAPIDIL
     Dosage: 15 MILLIGRAM, QD
     Route: 048
     Dates: end: 20181107
  9. TRICHLORMETHIAZIDE [Interacting]
     Active Substance: TRICHLORMETHIAZIDE
     Indication: HYPERTENSION
     Dosage: 2 MILLIGRAM, QD
     Route: 048
     Dates: end: 20181107
  10. ROZEREM [Suspect]
     Active Substance: RAMELTEON
     Indication: INSOMNIA
     Dosage: 8 MILLIGRAM, QD
     Route: 048
     Dates: start: 201809, end: 20181106
  11. ETIZOLAM [Interacting]
     Active Substance: ETIZOLAM
     Dosage: 0.25 MILLIGRAM, QD
     Route: 048
     Dates: start: 20181107
  12. MAGMITT [Concomitant]
     Active Substance: MAGNESIUM OXIDE
     Indication: CONSTIPATION
     Dosage: 330 MILLIGRAM, QD
     Route: 048
     Dates: end: 20181118
  13. EBRANTIL [Interacting]
     Active Substance: URAPIDIL
     Indication: NEUROGENIC BLADDER
     Dosage: 15 MILLIGRAM, BID
     Route: 048
  14. BROTIZOLAM [Interacting]
     Active Substance: BROTIZOLAM
     Indication: INSOMNIA
     Dosage: 0.25 MILLIGRAM, QD
     Route: 048
     Dates: start: 201809, end: 20181107
  15. AMLODIPINE                         /00972402/ [Interacting]
     Active Substance: AMLODIPINE BESYLATE
     Dosage: 2.5 MILLIGRAM, QD
     Route: 048
     Dates: end: 20181107
  16. FEBURIC [Concomitant]
     Active Substance: FEBUXOSTAT
     Indication: HYPERURICAEMIA
     Dosage: 10 MILLIGRAM, QD
     Route: 048
     Dates: end: 20181107

REACTIONS (10)
  - Decreased activity [Unknown]
  - Humerus fracture [Recovering/Resolving]
  - Somnolence [Unknown]
  - Sedation complication [Unknown]
  - Fall [Unknown]
  - Decreased appetite [Recovered/Resolved]
  - Blood pressure decreased [Unknown]
  - Decubitus ulcer [Recovering/Resolving]
  - Potentiating drug interaction [Unknown]
  - Underdose [Unknown]

NARRATIVE: CASE EVENT DATE: 201809
